FAERS Safety Report 20699888 (Version 1)
Quarter: 2022Q2

REPORT INFORMATION
  Report Type: Spontaneous
  Country: US (occurrence: None)
  Receive Date: 20220409
  Receipt Date: 20220409
  Transmission Date: 20220721
  Serious: Yes (Hospitalization)
  Sender: FDA-Public Use
  Company Number: None

PATIENT
  Sex: Male

DRUGS (8)
  1. DEXAMETHASONE [Suspect]
     Active Substance: DEXAMETHASONE
     Indication: Plasma cell myeloma
     Dosage: OTHER FREQUENCY : EVERY WEEK;?
     Route: 048
  2. DILTIAZEM ER CAP [Concomitant]
  3. METFORMIN TAB [Concomitant]
  4. omeprazole 20 mg cap [Concomitant]
  5. REVLIMID 25MG CAP [Concomitant]
  6. VELCADE [Concomitant]
     Active Substance: BORTEZOMIB
  7. WARFARIN 5 MG TAB [Concomitant]
  8. ZOLEDRONIC ACID [Concomitant]
     Active Substance: ZOLEDRONIC ACID

REACTIONS (4)
  - Haemorrhage [None]
  - Asthenia [None]
  - Platelet transfusion [None]
  - Transfusion [None]
